FAERS Safety Report 18677270 (Version 2)
Quarter: 2021Q3

REPORT INFORMATION
  Report Type: Spontaneous
  Country: US (occurrence: US)
  Receive Date: 20201229
  Receipt Date: 20210824
  Transmission Date: 20211014
  Serious: Yes (Other)
  Sender: FDA-Public Use
  Company Number: US-PFIZER INC-2020512310

PATIENT
  Age: 57 Year
  Sex: Female

DRUGS (1)
  1. XELJANZ XR [Suspect]
     Active Substance: TOFACITINIB CITRATE
     Indication: RHEUMATOID ARTHRITIS
     Dosage: 11 MG, DAILY
     Route: 048
     Dates: start: 201601

REACTIONS (6)
  - Joint warmth [Recovering/Resolving]
  - Joint stiffness [Recovering/Resolving]
  - Sinusitis [Recovering/Resolving]
  - Oedema peripheral [Recovering/Resolving]
  - Hypersensitivity [Not Recovered/Not Resolved]
  - Rheumatoid arthritis [Recovering/Resolving]
